FAERS Safety Report 6582225-2 (Version None)
Quarter: 2010Q1

REPORT INFORMATION
  Report Type: 
  Country: None (occurrence: None)
  Receive Date: 20100212
  Receipt Date: 20100212
  Transmission Date: 20100710
  Serious: Yes (Hospitalization)
  Sender: FDA-Public Use
  Company Number: None

PATIENT
  Age: 59 Year
  Sex: Male
  Weight: 106.9 kg

DRUGS (1)
  1. GABAPENTIN [Suspect]
     Indication: PAIN
     Dosage: 400 MG HS PO
     Route: 048
     Dates: start: 20091001, end: 20091008

REACTIONS (8)
  - CEREBROVASCULAR ACCIDENT [None]
  - DYSPHAGIA [None]
  - GUILLAIN-BARRE SYNDROME [None]
  - HEADACHE [None]
  - HYPERSENSITIVITY [None]
  - HYPOAESTHESIA ORAL [None]
  - REFUSAL OF TREATMENT BY PATIENT [None]
  - SOMNOLENCE [None]
